FAERS Safety Report 8814743 (Version 1)
Quarter: 2012Q4

REPORT INFORMATION
  Report Type: 
  Country: DE (occurrence: DE)
  Receive Date: 20120928
  Receipt Date: 20120928
  Transmission Date: 20130627
  Serious: Yes (Other)
  Sender: FDA-Public Use
  Company Number: DE-PFIZER INC-2012212335

PATIENT
  Age: 57 Year
  Sex: Male
  Weight: 60 kg

DRUGS (1)
  1. CRIZOTINIB [Suspect]
     Indication: BRONCHIAL CARCINOMA
     Dosage: 250 mg, 2x/day
     Route: 048
     Dates: start: 20120710

REACTIONS (2)
  - Gastrooesophageal reflux disease [Recovered/Resolved]
  - Sepsis [Unknown]
